FAERS Safety Report 6888129-X (Version None)
Quarter: 2010Q3

REPORT INFORMATION
  Report Type: 
  Country: None (occurrence: None)
  Receive Date: 20100727
  Receipt Date: 20100715
  Transmission Date: 20110219
  Serious: Yes (Other)
  Sender: FDA-Public Use
  Company Number: CIP10001648

PATIENT
  Age: 66 Year
  Sex: Female

DRUGS (1)
  1. ACTONEL [Suspect]
     Indication: OSTEOPOROSIS
     Dosage: 17.5 ONCE WEEKLY, ORAL
     Route: 048
     Dates: start: 20100621, end: 20100706

REACTIONS (8)
  - CEREBRAL INFARCTION [None]
  - EYE PAIN [None]
  - EYE SWELLING [None]
  - EYELID OEDEMA [None]
  - FALL [None]
  - NAUSEA [None]
  - PYREXIA [None]
  - TRANSIENT ISCHAEMIC ATTACK [None]
